FAERS Safety Report 18540750 (Version 1)
Quarter: 2020Q4

REPORT INFORMATION
  Report Type: Spontaneous
  Country: ES (occurrence: ES)
  Receive Date: 20201124
  Receipt Date: 20201124
  Transmission Date: 20210114
  Serious: Yes (Hospitalization)
  Sender: FDA-Public Use
  Company Number: ES-JNJFOC-20201114094

PATIENT
  Age: 39 Year
  Sex: Female

DRUGS (1)
  1. CONCERTA [Suspect]
     Active Substance: METHYLPHENIDATE HYDROCHLORIDE
     Indication: SUBSTANCE USE
     Route: 065
     Dates: start: 20201026

REACTIONS (4)
  - Psychomotor hyperactivity [Recovered/Resolved]
  - Verbigeration [Recovered/Resolved]
  - Substance use [Unknown]
  - Dependence [Unknown]

NARRATIVE: CASE EVENT DATE: 2020
